FAERS Safety Report 9336847 (Version 1)
Quarter: 2013Q2

REPORT INFORMATION
  Report Type: Spontaneous
  Country: CN (occurrence: CN)
  Receive Date: 20130607
  Receipt Date: 20130607
  Transmission Date: 20140414
  Serious: Yes (Hospitalization)
  Sender: FDA-Public Use
  Company Number: CN-PFIZER INC-2013171665

PATIENT
  Age: 83 Year
  Sex: Male
  Weight: 50 kg

DRUGS (3)
  1. PIPERACILLIN/TAZOBACTAM [Suspect]
     Dosage: UNK
     Dates: start: 20121102, end: 20121105
  2. OMEPRAZOLE [Concomitant]
     Dosage: UNK
     Dates: start: 20121102, end: 20121111
  3. PIRACETAM [Concomitant]
     Dosage: UNK
     Dates: start: 20121102, end: 20121113

REACTIONS (3)
  - Drug ineffective [Unknown]
  - Coagulopathy [Recovered/Resolved]
  - Haemoptysis [None]
